FAERS Safety Report 9316577 (Version 1)
Quarter: 2013Q2

REPORT INFORMATION
  Report Type: Spontaneous
  Country: US (occurrence: None)
  Receive Date: 20130528
  Receipt Date: 20130528
  Transmission Date: 20140414
  Serious: Yes (Hospitalization)
  Sender: FDA-Public Use
  Company Number: None

PATIENT
  Age: 56 Year
  Sex: Male
  Weight: 85.8 kg

DRUGS (1)
  1. DOCETAXEL [Suspect]
     Indication: NON-SMALL CELL LUNG CANCER METASTATIC
     Dosage: EVERY 21 DAYS
     Route: 042
     Dates: start: 20130507, end: 20130507

REACTIONS (7)
  - Asthenia [None]
  - Fatigue [None]
  - Back pain [None]
  - Urinary retention [None]
  - Dehydration [None]
  - Dysphagia [None]
  - Pneumonitis [None]
